FAERS Safety Report 19951363 (Version 1)
Quarter: 2021Q4

REPORT INFORMATION
  Report Type: 
  Country: None (occurrence: None)
  Receive Date: 20211014
  Receipt Date: 20211014
  Transmission Date: 20220303
  Serious: No
  Sender: FDA-Public Use
  Company Number: None

PATIENT
  Age: 94 Year
  Sex: Male

DRUGS (1)
  1. COSOPT PF [Suspect]
     Active Substance: DORZOLAMIDE HYDROCHLORIDE\TIMOLOL MALEATE

REACTIONS (3)
  - Lacrimation increased [Recovered/Resolved]
  - Eye pruritus [Recovered/Resolved]
  - Eye irritation [Recovered/Resolved]
